FAERS Safety Report 6929970-4 (Version None)
Quarter: 2010Q3

REPORT INFORMATION
  Report Type: 
  Country: None (occurrence: None)
  Receive Date: 20100813
  Receipt Date: 20100804
  Transmission Date: 20110219
  Serious: Yes (Other)
  Sender: FDA-Public Use
  Company Number: 2010US003202

PATIENT
  Age: 72 Year
  Sex: Male

DRUGS (7)
  1. AMBISOME [Suspect]
     Indication: CANDIDIASIS
     Dosage: 75 MG, UID/QD, IV NOS
     Route: 042
     Dates: start: 20090501
  2. PIPERACILLIN W/TAZOBACTAM (PIPERACILLIN, TAZOBACTAM) [Concomitant]
  3. CLINDAMYCIN [Concomitant]
  4. VANCOMYCIN [Concomitant]
  5. TIGECYCLINE [Concomitant]
  6. DROTRECOGIN ALFA [Concomitant]
  7. FLUCONAZOLE [Concomitant]

REACTIONS (1)
  - TOXIC SKIN ERUPTION [None]
